FAERS Safety Report 4786915-3 (Version None)
Quarter: 2005Q3

REPORT INFORMATION
  Report Type: 
  Country: None (occurrence: None)
  Receive Date: 20050930
  Receipt Date: 20050919
  Transmission Date: 20060218
  Serious: Yes (Hospitalization, Other)
  Sender: FDA-Public Use
  Company Number: 2005S1000198

PATIENT
  Age: 45 Year
  Sex: Female
  Weight: 75 kg

DRUGS (7)
  1. CUBICIN [Suspect]
     Indication: ENTEROCOCCAL BACTERAEMIA
     Dosage: 6 MG/KG
     Dates: start: 20050829, end: 20050908
  2. INSULIN [Concomitant]
  3. DILTIAZEM [Concomitant]
  4. LEVOPHED [Concomitant]
  5. PROMETHAZINE [Concomitant]
  6. ELECTROLYTE [Concomitant]
  7. EPLACEMENTS [Concomitant]

REACTIONS (2)
  - RENAL IMPAIRMENT [None]
  - RHABDOMYOLYSIS [None]
